FAERS Safety Report 7542555-4 (Version None)
Quarter: 2011Q2

REPORT INFORMATION
  Report Type: 
  Country: None (occurrence: None)
  Receive Date: 20110524
  Receipt Date: 20110215
  Transmission Date: 20111010
  Serious: No
  Sender: FDA-Public Use
  Company Number: 025374

PATIENT
  Sex: Female
  Weight: 50.8 kg

DRUGS (2)
  1. CIMZIA [Suspect]
     Indication: CROHN'S DISEASE
     Dosage: (SUBCUTANEOUS), (200 MG 1X/2 WEEKS SUBCONJUNCTIVAL)
     Route: 058
     Dates: start: 20101101
  2. CIMZIA [Suspect]
     Indication: CROHN'S DISEASE
     Dosage: (SUBCUTANEOUS), (200 MG 1X/2 WEEKS SUBCONJUNCTIVAL)
     Route: 058
     Dates: start: 20100906, end: 20100101

REACTIONS (4)
  - SINUSITIS [None]
  - CHEST PAIN [None]
  - TACHYCARDIA [None]
  - PALPITATIONS [None]
